FAERS Safety Report 18263455 (Version 1)
Quarter: 2020Q3

REPORT INFORMATION
  Report Type: Spontaneous
  Country: CO (occurrence: CO)
  Receive Date: 20200914
  Receipt Date: 20200914
  Transmission Date: 20201103
  Serious: Yes (Hospitalization, Other)
  Sender: FDA-Public Use
  Company Number: CO-MICRO LABS LIMITED-ML2020-02654

PATIENT
  Age: 17 Year
  Sex: Female

DRUGS (7)
  1. AMLODIPINE [Suspect]
     Active Substance: AMLODIPINE BESYLATE
  2. METOPROLOL. [Suspect]
     Active Substance: METOPROLOL
  3. LOSARTAN. [Suspect]
     Active Substance: LOSARTAN
  4. VERAPAMIL HYDROCHLORIDE. [Suspect]
     Active Substance: VERAPAMIL HYDROCHLORIDE
  5. FLUOXETINE [Suspect]
     Active Substance: FLUOXETINE HYDROCHLORIDE
  6. NITROFURANTOIN. [Suspect]
     Active Substance: NITROFURANTOIN
  7. PRAZOSIN. [Suspect]
     Active Substance: PRAZOSIN

REACTIONS (8)
  - Toxicity to various agents [Unknown]
  - Intentional overdose [Unknown]
  - Hypotension [Recovered/Resolved]
  - Atrioventricular block first degree [Recovered/Resolved]
  - Sinus bradycardia [Recovered/Resolved]
  - Bradycardia [Recovered/Resolved]
  - Suicide attempt [Unknown]
  - Cardiogenic shock [Recovered/Resolved]
